FAERS Safety Report 19285157 (Version 3)
Quarter: 2021Q4

REPORT INFORMATION
  Report Type: Report from Study
  Country: IN (occurrence: IN)
  Receive Date: 20210521
  Receipt Date: 20211101
  Transmission Date: 20220303
  Serious: Yes (Hospitalization, Other)
  Sender: FDA-Public Use
  Company Number: IN-BRISTOL-MYERS SQUIBB COMPANY-BMS-2021-047346

PATIENT
  Age: 81 Year
  Sex: Female
  Weight: 53.2 kg

DRUGS (4)
  1. NIVOLUMAB [Suspect]
     Active Substance: NIVOLUMAB
     Indication: Non-small cell lung cancer
     Dosage: 180 MILLIGRAM, Q2WK
     Route: 042
     Dates: start: 20210401
  2. NIVOLUMAB [Suspect]
     Active Substance: NIVOLUMAB
     Dosage: 180 MILLIGRAM, Q2WK
     Route: 042
     Dates: start: 20210407
  3. NIVOLUMAB [Suspect]
     Active Substance: NIVOLUMAB
     Dosage: 160 MILLIGRAM, Q2WK
     Route: 042
     Dates: start: 20210520
  4. NIVOLUMAB [Suspect]
     Active Substance: NIVOLUMAB
     Dosage: 160 MILLIGRAM, Q2WK
     Route: 042
     Dates: start: 20210911

REACTIONS (13)
  - Pyrexia [Unknown]
  - Pain [Unknown]
  - Asthenia [Recovering/Resolving]
  - Pruritus [Unknown]
  - Hypokalaemia [Unknown]
  - Constipation [Unknown]
  - Hepatomegaly [Unknown]
  - Pleural effusion [Unknown]
  - Dyspnoea [Unknown]
  - Blood pressure increased [Unknown]
  - Dyspnoea exertional [Recovering/Resolving]
  - Back pain [Recovering/Resolving]
  - Ascites [Recovering/Resolving]

NARRATIVE: CASE EVENT DATE: 20210401
